FAERS Safety Report 9482290 (Version 1)
Quarter: 2013Q3

REPORT INFORMATION
  Report Type: Spontaneous
  Country: US (occurrence: US)
  Receive Date: 20130828
  Receipt Date: 20130828
  Transmission Date: 20140515
  Serious: Yes (Hospitalization, Other)
  Sender: FDA-Public Use
  Company Number: US-009507513-1308USA011540

PATIENT
  Age: 80 Year
  Sex: Female

DRUGS (2)
  1. ZETIA [Suspect]
     Indication: BLOOD CHOLESTEROL
     Route: 048
  2. SYNTHROID [Concomitant]

REACTIONS (3)
  - Biliary colic [Unknown]
  - Choledocholithotomy [Unknown]
  - Cholecystectomy [Unknown]
